FAERS Safety Report 16797075 (Version 1)
Quarter: 2019Q3

REPORT INFORMATION
  Report Type: Report from Study
  Country: BR (occurrence: BR)
  Receive Date: 20190911
  Receipt Date: 20190911
  Transmission Date: 20191005
  Serious: Yes (Other)
  Sender: FDA-Public Use
  Company Number: PHHY2019BR210915

PATIENT
  Sex: Female

DRUGS (2)
  1. FORASEQ [Suspect]
     Active Substance: BUDESONIDE\FORMOTEROL FUMARATE
     Indication: PRODUCT USED FOR UNKNOWN INDICATION
     Dosage: (BUDESONIDE 200, FORMOTEROL FUMARATE 12) (UNITS NOT PROVIDED)
     Route: 065
  2. FORASEQ [Suspect]
     Active Substance: BUDESONIDE\FORMOTEROL FUMARATE
     Dosage: (BUDESONIDE 400, FORMOTEROL FUMARATE 12) (UNITS NOT PROVIDED)
     Route: 065

REACTIONS (1)
  - Asthmatic crisis [Not Recovered/Not Resolved]
